FAERS Safety Report 5414496-X (Version None)
Quarter: 2007Q3

REPORT INFORMATION
  Report Type: 
  Country: None (occurrence: None)
  Receive Date: 20070731
  Receipt Date: 20070410
  Transmission Date: 20080115
  Serious: No
  Sender: FDA-Public Use
  Company Number: 2006PV026455

PATIENT
  Age: 74 Year
  Sex: Male
  Weight: 81.2 kg

DRUGS (11)
  1. EXENATIDE [Suspect]
     Indication: TYPE 2 DIABETES MELLITUS
     Dosage: 5 UG, 2/D, SQ   10 UG, 2/D, SQ   10 UG, 2/D, SQ   10 UG, 2/D, SQ   5 UG, 2/D, SQ
     Route: 058
     Dates: start: 20061126, end: 20061227
  2. EXENATIDE [Suspect]
     Indication: TYPE 2 DIABETES MELLITUS
     Dosage: 5 UG, 2/D, SQ   10 UG, 2/D, SQ   10 UG, 2/D, SQ   10 UG, 2/D, SQ   5 UG, 2/D, SQ
     Route: 058
     Dates: start: 20061228, end: 20070101
  3. EXENATIDE [Suspect]
     Indication: TYPE 2 DIABETES MELLITUS
     Dosage: 5 UG, 2/D, SQ   10 UG, 2/D, SQ   10 UG, 2/D, SQ   10 UG, 2/D, SQ   5 UG, 2/D, SQ
     Route: 058
     Dates: start: 20061228, end: 20070101
  4. EXENATIDE [Suspect]
     Indication: TYPE 2 DIABETES MELLITUS
     Dosage: 5 UG, 2/D, SQ   10 UG, 2/D, SQ   10 UG, 2/D, SQ   10 UG, 2/D, SQ   5 UG, 2/D, SQ
     Route: 058
     Dates: start: 20070101, end: 20070101
  5. EXENATIDE [Suspect]
     Indication: TYPE 2 DIABETES MELLITUS
     Dosage: 5 UG, 2/D, SQ   10 UG, 2/D, SQ   10 UG, 2/D, SQ   10 UG, 2/D, SQ   5 UG, 2/D, SQ
     Route: 058
     Dates: start: 20070101
  6. EXENATIDE (EXENATIDE) PEN, DISPOSABLE [Suspect]
  7. EXENATIDE (EXENATIDE) PEN, DISPOSABLE [Suspect]
  8. NEXIUM [Concomitant]
  9. ACTOS [Concomitant]
  10. ZANTAC 150 [Concomitant]
  11. TUMS [Concomitant]

REACTIONS (7)
  - CONSTIPATION [None]
  - DECREASED APPETITE [None]
  - DYSPEPSIA [None]
  - GASTROOESOPHAGEAL REFLUX DISEASE [None]
  - INJECTION SITE HAEMORRHAGE [None]
  - NAUSEA [None]
  - WEIGHT DECREASED [None]
